FAERS Safety Report 21336084 (Version 3)
Quarter: 2025Q3

REPORT INFORMATION
  Report Type: Report from Study
  Country: EU (occurrence: EU)
  Receive Date: 20220915
  Receipt Date: 20250923
  Transmission Date: 20251021
  Serious: Yes (Hospitalization, Other)
  Sender: TAKEDA
  Company Number: EU-TAKEDA-2022TUS063415

PATIENT
  Age: 42 Year
  Sex: Female

DRUGS (20)
  1. TEDUGLUTIDE [Suspect]
     Active Substance: TEDUGLUTIDE
     Indication: Short-bowel syndrome
     Dosage: 2.25 MILLIGRAM, QD
     Dates: start: 20150410, end: 20230509
  2. TEDUGLUTIDE [Suspect]
     Active Substance: TEDUGLUTIDE
     Dosage: 2.25 MILLIGRAM, 4/WEEK
     Dates: start: 20230510
  3. TEDUGLUTIDE [Suspect]
     Active Substance: TEDUGLUTIDE
  4. TEDUGLUTIDE [Suspect]
     Active Substance: TEDUGLUTIDE
  5. COTRIM [Concomitant]
     Active Substance: SULFAMETHOXAZOLE\TRIMETHOPRIM
     Indication: Urinary tract infection
  6. IMDEVIMAB [Concomitant]
     Active Substance: IMDEVIMAB
     Indication: COVID-19
  7. RIFAXIMIN [Concomitant]
     Active Substance: RIFAXIMIN
     Indication: Diarrhoea
     Dosage: 400 MILLIGRAM, BID
     Dates: start: 201902
  8. OPIUM TINCTURE [Concomitant]
     Active Substance: MORPHINE
     Indication: Gastroenteritis radiation
     Dosage: 100 MILLIGRAM, Q6HR
     Dates: start: 201511, end: 201701
  9. Posterisan [Concomitant]
     Indication: Haemorrhoids
  10. IMODIUM [Concomitant]
     Active Substance: LOPERAMIDE HYDROCHLORIDE
     Indication: Prophylaxis
  11. ALLOPURINOL [Concomitant]
     Active Substance: ALLOPURINOL
     Indication: Renal failure
     Dosage: 100 MILLIGRAM, QD
     Dates: start: 2023
  12. FLUOXETINE HYDROCHLORIDE [Concomitant]
     Active Substance: FLUOXETINE HYDROCHLORIDE
     Indication: Depression
     Dosage: 22.4 MILLIGRAM, QD
     Dates: start: 2022
  13. SODIUM BICARBONATE [Concomitant]
     Active Substance: SODIUM BICARBONATE
     Indication: Prophylaxis
     Dosage: 840 MILLIGRAM, BID
     Dates: start: 2022
  14. SODIUM BICARBONATE [Concomitant]
     Active Substance: SODIUM BICARBONATE
     Indication: Metabolic acidosis
  15. Dropizol [Concomitant]
     Indication: Gastroenteritis radiation
     Dosage: UNK UNK, QD
     Dates: start: 2022
  16. CHOLECALCIFEROL [Concomitant]
     Active Substance: CHOLECALCIFEROL
     Indication: Vitamin D deficiency
     Dosage: 500 MICROGRAM, 1/WEEK
     Dates: start: 20231005
  17. CEFOTAXIME [Concomitant]
     Active Substance: CEFOTAXIME SODIUM
     Indication: Bacteriuria
  18. OCTREOTIDE [Concomitant]
     Active Substance: OCTREOTIDE
     Indication: Short-bowel syndrome
     Dosage: 100 MICROGRAM, TID
     Dates: start: 202310
  19. ETILEFRINE HYDROCHLORIDE [Concomitant]
     Active Substance: ETILEFRINE HYDROCHLORIDE
     Indication: Hypotension
     Dosage: UNK UNK, BID
     Dates: start: 202310
  20. Calcet [Concomitant]
     Indication: Hypocalcaemia
     Dosage: 475 MILLIGRAM, TID
     Dates: start: 202310

REACTIONS (4)
  - Enterovesical fistula [Not Recovered/Not Resolved]
  - Pyelonephritis [Recovered/Resolved]
  - Urinary tract infection [Recovered/Resolved]
  - Pyrexia [Recovered/Resolved]

NARRATIVE: CASE EVENT DATE: 20220511
